FAERS Safety Report 4963138-6 (Version None)
Quarter: 2006Q2

REPORT INFORMATION
  Report Type: 
  Country: None (occurrence: None)
  Receive Date: 20060405
  Receipt Date: 20040723
  Transmission Date: 20061013
  Serious: Yes (Hospitalization)
  Sender: FDA-Public Use
  Company Number: ES-ROCHE-375128

PATIENT
  Age: 73 Year
  Sex: Female
  Weight: 79 kg

DRUGS (9)
  1. BONIVA [Suspect]
     Indication: OSTEOPOROSIS POSTMENOPAUSAL
     Route: 048
     Dates: start: 20021107, end: 20040701
  2. PLACEBO [Suspect]
     Indication: OSTEOPOROSIS POSTMENOPAUSAL
     Route: 042
     Dates: start: 20021107, end: 20040723
  3. ACETAMINOPHEN [Concomitant]
  4. DICLOFENACO [Concomitant]
  5. ESPIRONOLACTONA [Concomitant]
  6. RANITIDINA [Concomitant]
  7. TETRAZEPAM [Concomitant]
     Dates: start: 20031107
  8. CALCIUM + VITAMIN D [Concomitant]
     Dosage: DAILY DOSE: 500 MG/400 IU.
     Dates: start: 20030615
  9. CARVEDILOL [Concomitant]
     Dates: start: 20040615

REACTIONS (1)
  - TEMPORAL ARTERITIS [None]
